FAERS Safety Report 9813606 (Version 1)
Quarter: 2014Q1

REPORT INFORMATION
  Report Type: Spontaneous
  Country: US (occurrence: None)
  Receive Date: 20140109
  Receipt Date: 20140109
  Transmission Date: 20141002
  Serious: Yes (Life-Threatening, Other)
  Sender: FDA-Public Use
  Company Number: 001650849A

PATIENT
  Age: 23 Year
  Sex: Female

DRUGS (2)
  1. PROACTIV REPAIRING TREATMENT [Suspect]
     Indication: ACNE
     Dosage: ONCE DAILY DERMAL
     Dates: start: 20131204, end: 20131211
  2. BIRTH CONTROL [Concomitant]

REACTIONS (6)
  - Swelling face [None]
  - Eye swelling [None]
  - Dyspnoea [None]
  - Throat tightness [None]
  - Erythema [None]
  - Pruritus [None]
